FAERS Safety Report 24566109 (Version 1)
Quarter: 2024Q4

REPORT INFORMATION
  Report Type: Spontaneous
  Country: US (occurrence: US)
  Receive Date: 20241030
  Receipt Date: 20241030
  Transmission Date: 20250115
  Serious: No
  Sender: NEUROCRINE BIOSCIENCES
  Company Number: US-NEUROCRINE BIOSCIENCES INC.-2024NBI10353

PATIENT
  Age: 29 Year
  Sex: Female

DRUGS (3)
  1. INGREZZA [Suspect]
     Active Substance: VALBENAZINE
     Indication: Tardive dyskinesia
     Dosage: 40 MILLIGRAM
     Route: 065
  2. CLOZAPINE [Concomitant]
     Active Substance: CLOZAPINE
  3. HALDOL [Concomitant]
     Active Substance: HALOPERIDOL

REACTIONS (4)
  - Cognitive disorder [Recovering/Resolving]
  - Memory impairment [Recovering/Resolving]
  - Dizziness [Recovering/Resolving]
  - Balance disorder [Recovering/Resolving]
